FAERS Safety Report 7353401-6 (Version None)
Quarter: 2011Q1

REPORT INFORMATION
  Report Type: 
  Country: None (occurrence: None)
  Receive Date: 20110315
  Receipt Date: 20110311
  Transmission Date: 20110831
  Serious: Yes (Hospitalization)
  Sender: FDA-Public Use
  Company Number: DE-ABBOTT-11P-062-0701860-00

PATIENT
  Sex: Female
  Weight: 132 kg

DRUGS (4)
  1. DICLAC [Concomitant]
     Indication: PRODUCT USED FOR UNKNOWN INDICATION
     Dosage: 75 MG DAILY
  2. BLOOD-PRESSURE DEPRESSORS [Concomitant]
     Indication: PRODUCT USED FOR UNKNOWN INDICATION
  3. TRAMAL [Concomitant]
     Indication: PRODUCT USED FOR UNKNOWN INDICATION
  4. HUMIRA [Suspect]
     Indication: RHEUMATOID ARTHRITIS
     Route: 058
     Dates: start: 20071007

REACTIONS (3)
  - INTERVERTEBRAL DISC PROTRUSION [None]
  - NECK PAIN [None]
  - PAIN [None]
